FAERS Safety Report 5533005-8 (Version None)
Quarter: 2007Q4

REPORT INFORMATION
  Report Type: 
  Country: None (occurrence: None)
  Receive Date: 20071204
  Receipt Date: 20071127
  Transmission Date: 20080405
  Serious: Yes (Other)
  Sender: FDA-Public Use
  Company Number: PHEH2007US15303

PATIENT
  Sex: Male

DRUGS (5)
  1. QUINAPRIL HCL [Suspect]
     Indication: HYPERTENSION
  2. AMLODIPINE [Suspect]
     Indication: HYPERTENSION
  3. CLONIDINE [Suspect]
     Indication: HYPERTENSION
  4. LIPITOR [Suspect]
  5. HYDROCHLOROTHIAZIDE [Suspect]
     Indication: HYPERTENSION
     Dosage: 25 MG, UNK

REACTIONS (1)
  - THROMBOSIS [None]
